FAERS Safety Report 6219826-7 (Version None)
Quarter: 2009Q2

REPORT INFORMATION
  Report Type: 
  Country: None (occurrence: None)
  Receive Date: 20090609
  Receipt Date: 20090528
  Transmission Date: 20091009
  Serious: Yes (Other)
  Sender: FDA-Public Use
  Company Number: US-JNJFOC-20090600064

PATIENT
  Sex: Male
  Weight: 141.52 kg

DRUGS (3)
  1. DURAGESIC-100 [Suspect]
     Route: 062
  2. DURAGESIC-100 [Suspect]
     Indication: BACK PAIN
     Route: 062
  3. XYREM [Concomitant]
     Indication: NARCOLEPSY
     Route: 048

REACTIONS (2)
  - CATATONIA [None]
  - WRONG TECHNIQUE IN DRUG USAGE PROCESS [None]
